FAERS Safety Report 22115456 (Version 1)
Quarter: 2023Q1

REPORT INFORMATION
  Report Type: Spontaneous
  Country: US (occurrence: US)
  Receive Date: 20230320
  Receipt Date: 20230320
  Transmission Date: 20230418
  Serious: No
  Sender: FDA-Public Use
  Company Number: US-SA-2023SA081950

PATIENT
  Sex: Male
  Weight: 97.052 kg

DRUGS (1)
  1. DUPIXENT [Suspect]
     Active Substance: DUPILUMAB
     Dosage: 300 MG, QOW
     Route: 058

REACTIONS (3)
  - Skin fissures [Not Recovered/Not Resolved]
  - Penile ulceration [Not Recovered/Not Resolved]
  - Skin exfoliation [Not Recovered/Not Resolved]
